FAERS Safety Report 19066578 (Version 1)
Quarter: 2021Q1

REPORT INFORMATION
  Report Type: Spontaneous
  Country: US (occurrence: US)
  Receive Date: 20210328
  Receipt Date: 20210328
  Transmission Date: 20210420
  Serious: Yes (Other)
  Sender: FDA-Public Use
  Company Number: US-TEVA-2021-US-1893797

PATIENT
  Age: 64 Year
  Sex: Male

DRUGS (3)
  1. CYCLOSPORINE. [Suspect]
     Active Substance: CYCLOSPORINE
     Indication: ERYTHRODERMIC PSORIASIS
     Dosage: 400 MILLIGRAM DAILY;
     Route: 065
  2. HYDROCORTISONE. [Concomitant]
     Active Substance: HYDROCORTISONE
     Indication: ERYTHRODERMIC PSORIASIS
     Dosage: ON THE FACE
     Route: 061
  3. TRIAMCINOLONE [Concomitant]
     Active Substance: TRIAMCINOLONE
     Indication: ERYTHRODERMIC PSORIASIS
     Dosage: ON THE BODY
     Route: 061

REACTIONS (2)
  - Pemphigoid [Recovered/Resolved]
  - Rebound effect [Recovered/Resolved]
